FAERS Safety Report 10052561 (Version 1)
Quarter: 2014Q1

REPORT INFORMATION
  Report Type: Spontaneous
  Country: US (occurrence: None)
  Receive Date: 20140331
  Receipt Date: 20140331
  Transmission Date: 20141002
  Serious: Yes (Hospitalization)
  Sender: FDA-Public Use
  Company Number: IPC201403-000135

PATIENT
  Sex: Male

DRUGS (1)
  1. METOPROLOL TARTRATE [Suspect]

REACTIONS (4)
  - Hypersensitivity [None]
  - Coma [None]
  - Angioedema [None]
  - Pneumonia [None]
